FAERS Safety Report 19463491 (Version 4)
Quarter: 2023Q1

REPORT INFORMATION
  Report Type: Spontaneous
  Country: DE (occurrence: DE)
  Receive Date: 20210625
  Receipt Date: 20230210
  Transmission Date: 20230418
  Serious: Yes (Life-Threatening, Hospitalization, Other)
  Sender: FDA-Public Use
  Company Number: DE-GLAXOSMITHKLINE-B0374650A

PATIENT

DRUGS (9)
  1. DICLOFENAC SODIUM [Interacting]
     Active Substance: DICLOFENAC SODIUM
     Indication: Postoperative analgesia
     Dosage: 75 MG, BID
     Route: 048
  2. DICLOFENAC SODIUM [Interacting]
     Active Substance: DICLOFENAC SODIUM
     Indication: Pain
     Dosage: 150 MG, QD
     Route: 048
  3. CLINDAMYCIN [Interacting]
     Active Substance: CLINDAMYCIN
     Indication: Antibiotic prophylaxis
     Dosage: 300 MG, TID
     Route: 048
  4. CLINDAMYCIN [Interacting]
     Active Substance: CLINDAMYCIN
     Dosage: 600 MG, QD
     Route: 048
  5. PIPERACILLIN [Suspect]
     Active Substance: PIPERACILLIN
     Indication: Product used for unknown indication
     Dosage: 4 G, TID
     Route: 042
  6. PIPERACILLIN [Suspect]
     Active Substance: PIPERACILLIN
     Dosage: 12 G, QD
     Route: 042
  7. GENTAMICIN [Suspect]
     Active Substance: GENTAMICIN
     Indication: Product used for unknown indication
     Dosage: 320 MG, QD
     Route: 042
  8. TAZOBACTAM [Suspect]
     Active Substance: TAZOBACTAM
     Indication: Product used for unknown indication
     Dosage: 0.5 G, TID
     Route: 042
  9. TAZOBACTAM [Suspect]
     Active Substance: TAZOBACTAM
     Dosage: 1.5 G, QD,  0.5 G, TID 3 SEPARATED DOSES
     Route: 042

REACTIONS (19)
  - Peritonitis [Recovered/Resolved]
  - Abdominal pain [Recovered/Resolved]
  - Pyrexia [Recovered/Resolved]
  - Anaemia [Recovered/Resolved]
  - Diarrhoea [Recovered/Resolved]
  - Leukocytosis [Recovered/Resolved]
  - Prothrombin time prolonged [Recovered/Resolved]
  - Large intestine perforation [Recovered/Resolved]
  - White blood cell count increased [Recovered/Resolved]
  - General physical health deterioration [Recovered/Resolved]
  - Skin lesion [Recovered/Resolved]
  - Haemoglobin decreased [Recovered/Resolved]
  - C-reactive protein increased [Recovered/Resolved]
  - Gastrointestinal sounds abnormal [Recovered/Resolved]
  - Platelet count increased [Recovered/Resolved]
  - Heart rate increased [Recovered/Resolved]
  - Body temperature increased [Recovered/Resolved]
  - Abdominal distension [Recovered/Resolved]
  - Ill-defined disorder [Unknown]

NARRATIVE: CASE EVENT DATE: 20030619
